FAERS Safety Report 20035134 (Version 4)
Quarter: 2022Q1

REPORT INFORMATION
  Report Type: Report from Study
  Country: IL (occurrence: IL)
  Receive Date: 20211104
  Receipt Date: 20220208
  Transmission Date: 20220423
  Serious: Yes (Congenital Anomaly, Other)
  Sender: FDA-Public Use
  Company Number: IL-ViiV Healthcare Limited-IL2021GSK226760

PATIENT
  Sex: Male
  Weight: .6 kg

DRUGS (2)
  1. DOLUTEGRAVIR [Suspect]
     Active Substance: DOLUTEGRAVIR
     Indication: HIV infection
     Dosage: 50 MG, QD
     Route: 064
  2. EMTRICITABINE\TENOFOVIR DISOPROXIL FUMARATE [Suspect]
     Active Substance: EMTRICITABINE\TENOFOVIR DISOPROXIL FUMARATE
     Indication: HIV infection
     Dosage: 1 DF (TAB/CAPS), QD
     Route: 064

REACTIONS (5)
  - VACTERL syndrome [Unknown]
  - Talipes [Unknown]
  - Single umbilical artery [Unknown]
  - Renal aplasia [Unknown]
  - Foetal exposure during pregnancy [Unknown]
